FAERS Safety Report 4830918-7 (Version None)
Quarter: 2005Q4

REPORT INFORMATION
  Report Type: 
  Country: None (occurrence: None)
  Receive Date: 20051114
  Receipt Date: 20051101
  Transmission Date: 20060501
  Serious: Yes (Hospitalization, Other)
  Sender: FDA-Public Use
  Company Number: 2005151042

PATIENT
  Age: 61 Year
  Sex: Female

DRUGS (3)
  1. PHENYTOIN SODIUM [Suspect]
     Indication: ILL-DEFINED DISORDER
     Dosage: 300 MG (100 MG, 3 IN 1 D), ORAL
     Route: 048
     Dates: start: 20050520, end: 20050530
  2. PRAVASTATIN SODIUM [Concomitant]
  3. LERCANIDIPINE [Concomitant]

REACTIONS (2)
  - JAUNDICE [None]
  - STEVENS-JOHNSON SYNDROME [None]
